FAERS Safety Report 23021913 (Version 2)
Quarter: 2023Q4

REPORT INFORMATION
  Report Type: Spontaneous
  Country: FR (occurrence: FR)
  Receive Date: 20231003
  Receipt Date: 20231103
  Transmission Date: 20240110
  Serious: Yes (Other)
  Sender: FDA-Public Use
  Company Number: FR-SUN PHARMACEUTICAL INDUSTRIES LTD-2023RR-410406

PATIENT
  Age: 56 Year
  Sex: Female

DRUGS (6)
  1. BORTEZOMIB [Suspect]
     Active Substance: BORTEZOMIB
     Indication: Plasma cell disorder
     Dosage: 3 CYCLES
     Route: 065
  2. DASATINIB [Suspect]
     Active Substance: DASATINIB
     Indication: Chronic leukaemia
     Dosage: UNK
     Route: 065
  3. DEXAMETHASONE [Suspect]
     Active Substance: DEXAMETHASONE
     Indication: Plasma cell disorder
     Dosage: 3 CYCLES
     Route: 065
  4. AZACITIDINE [Suspect]
     Active Substance: AZACITIDINE
     Indication: Plasma cell disorder
     Dosage: 18 CYCLES
     Route: 065
  5. CARFILZOMIB [Suspect]
     Active Substance: CARFILZOMIB
     Indication: Plasma cell disorder
     Dosage: UNK
     Route: 065
  6. CYCLOPHOSPHAMIDE [Suspect]
     Active Substance: CYCLOPHOSPHAMIDE
     Indication: Plasma cell disorder
     Dosage: UNK
     Route: 065

REACTIONS (6)
  - Disease progression [Unknown]
  - Therapeutic product effect incomplete [Unknown]
  - Leukocytosis [Unknown]
  - Drug ineffective [Unknown]
  - Thrombocytopenia [Unknown]
  - Oedema peripheral [Unknown]
